FAERS Safety Report 7479616 (Version 2)
Quarter: 2012Q4

REPORT INFORMATION
  Report Type: Report from Study
  Country: US (occurrence: US)
  Receive Date: 20100716
  Receipt Date: 20121212
  Transmission Date: 20130627
  Serious: Yes (Hospitalization)
  Sender: FDA-Public Use
  Company Number: US-JNJFOC-20100702617

PATIENT
  Age: 73 Year
  Sex: Male
  Weight: 104.2 kg

DRUGS (3)
  1. DOXORUBICIN HYDROCHLORIDE(DOXIL) [Suspect]
     Indication: MULTIPLE MYELOMA
     Route: 042
     Dates: start: 20100701, end: 20100701
  2. REVLIMID [Suspect]
     Indication: MULTIPLE MYELOMA
     Route: 048
     Dates: start: 20100701, end: 20100707
  3. DEXAMETHASONE [Suspect]
     Indication: MULTIPLE MYELOMA
     Route: 048
     Dates: start: 20100701, end: 20100704

REACTIONS (1)
  - Confusional state [Recovered/Resolved]
